FAERS Safety Report 8236327-5 (Version None)
Quarter: 2012Q1

REPORT INFORMATION
  Report Type: 
  Country: None (occurrence: None)
  Receive Date: 20120327
  Receipt Date: 20120316
  Transmission Date: 20120608
  Serious: Yes (Hospitalization)
  Sender: FDA-Public Use
  Company Number: US-JNJFOC-20120113333

PATIENT
  Sex: Female
  Weight: 64.86 kg

DRUGS (4)
  1. AMBIEN [Concomitant]
     Route: 065
  2. NORVASC [Concomitant]
     Route: 065
  3. CYMBALTA [Concomitant]
     Route: 065
  4. REMICADE [Suspect]
     Indication: RHEUMATOID ARTHRITIS
     Route: 042
     Dates: end: 20110101

REACTIONS (3)
  - DRUG INEFFECTIVE [None]
  - SURGERY [None]
  - PRURITUS [None]
